FAERS Safety Report 8916794 (Version 3)
Quarter: 2012Q4

REPORT INFORMATION
  Report Type: 
  Country: US (occurrence: US)
  Receive Date: 20121120
  Receipt Date: 20121227
  Transmission Date: 20130627
  Serious: Yes (Hospitalization, Other)
  Sender: FDA-Public Use
  Company Number: US-BAYER-2012-118866

PATIENT
  Age: 50 Year
  Sex: Female

DRUGS (2)
  1. STIVARGA [Suspect]
     Indication: METASTATIC COLON CANCER
     Dosage: 120 mg
     Dates: start: 201210
  2. STIVARGA [Suspect]
     Indication: METASTATIC COLON CANCER
     Dosage: 160 mg, QD
     Route: 048
     Dates: start: 20121102, end: 20121112

REACTIONS (8)
  - General physical health deterioration [None]
  - Rash generalised [Recovering/Resolving]
  - Pyrexia [Recovering/Resolving]
  - Chills [Recovering/Resolving]
  - Neoplasm progression [None]
  - Chest pain [Recovered/Resolved]
  - Back pain [Recovered/Resolved]
  - Dysphonia [Recovered/Resolved]
